FAERS Safety Report 4720842-2 (Version None)
Quarter: 2005Q3

REPORT INFORMATION
  Report Type: 
  Country: None (occurrence: None)
  Receive Date: 20050721
  Receipt Date: 20050718
  Transmission Date: 20060218
  Serious: Yes (Other)
  Sender: FDA-Public Use
  Company Number: 005240

PATIENT
  Sex: Female

DRUGS (5)
  1. MEDROXYPROGESTERONE ACETATE [Suspect]
     Dates: start: 19820101, end: 19960101
  2. PREMARIN [Suspect]
     Dates: start: 19820101, end: 19960101
  3. PROVERA [Suspect]
     Dates: start: 19820101, end: 19960101
  4. ESTRADERM [Suspect]
     Dates: start: 19960701, end: 19970601
  5. PREMPRO [Suspect]
     Dates: start: 19960101, end: 20001101

REACTIONS (3)
  - BREAST CANCER FEMALE [None]
  - OESTROGEN RECEPTOR ASSAY POSITIVE [None]
  - PROGESTERONE RECEPTOR ASSAY POSITIVE [None]
